FAERS Safety Report 15823020 (Version 3)
Quarter: 2019Q4

REPORT INFORMATION
  Report Type: Spontaneous
  Country: US (occurrence: US)
  Receive Date: 20190114
  Receipt Date: 20191217
  Transmission Date: 20200122
  Serious: No
  Sender: FDA-Public Use
  Company Number: US-PFIZER INC-2017395150

PATIENT
  Age: 73 Year
  Sex: Female

DRUGS (1)
  1. XELJANZ [Suspect]
     Active Substance: TOFACITINIB CITRATE
     Indication: RHEUMATOID ARTHRITIS
     Dosage: 5 MG, UNK (ONE TABLET ON MONDAY, WEDNESDAY, AND FRIDAY, REMAINING DAYS TWICE DAILY)
     Route: 048

REACTIONS (4)
  - Drug ineffective [Unknown]
  - Memory impairment [Unknown]
  - Sensitivity to weather change [Unknown]
  - Off label use [Unknown]
